FAERS Safety Report 5703117-4 (Version None)
Quarter: 2008Q2

REPORT INFORMATION
  Report Type: 
  Country: None (occurrence: None)
  Receive Date: 20080411
  Receipt Date: 20080402
  Transmission Date: 20081010
  Serious: Yes (Other)
  Sender: FDA-Public Use
  Company Number: US-PFIZER INC-2004027796

PATIENT
  Sex: Male

DRUGS (4)
  1. LIPITOR [Suspect]
     Indication: ILL-DEFINED DISORDER
     Dates: start: 20020301, end: 20030901
  2. NORVASC [Concomitant]
  3. COZAAR [Concomitant]
  4. ASPIRIN [Concomitant]

REACTIONS (15)
  - ARTHRALGIA [None]
  - BACK DISORDER [None]
  - BLOOD PRESSURE ABNORMAL [None]
  - BONE PAIN [None]
  - EMOTIONAL DISORDER [None]
  - HYPOAESTHESIA [None]
  - MYALGIA [None]
  - PAIN [None]
  - ROTATOR CUFF SYNDROME [None]
  - SCIATICA [None]
  - SHOULDER OPERATION [None]
  - SPONDYLOLISTHESIS [None]
  - SUICIDAL IDEATION [None]
  - WEIGHT DECREASED [None]
  - WEIGHT INCREASED [None]
